FAERS Safety Report 19591127 (Version 2)
Quarter: 2021Q3

REPORT INFORMATION
  Report Type: Spontaneous
  Country: US (occurrence: US)
  Receive Date: 20210721
  Receipt Date: 20210805
  Transmission Date: 20211014
  Serious: Yes (Hospitalization)
  Sender: FDA-Public Use
  Company Number: US-PARI RESPIRATORY EQUIPMENT, INC.-2021PAR00038

PATIENT
  Age: 85 Year
  Sex: Male
  Weight: 77.1 kg

DRUGS (2)
  1. LONG LIST OF MEDICATIONS [Concomitant]
  2. KITABIS PAK [Suspect]
     Active Substance: TOBRAMYCIN
     Dosage: 300 MG (1 AMPULE) VIA NEBULIZER, 2X/DAY FOR 28 DAYS ON AND 28 DAYS OFF (EVERY OTHER MONTH)
     Dates: start: 202007

REACTIONS (2)
  - Infection [Recovered/Resolved]
  - Chronic obstructive pulmonary disease [Recovering/Resolving]

NARRATIVE: CASE EVENT DATE: 20210601
